FAERS Safety Report 13339732 (Version 9)
Quarter: 2018Q4

REPORT INFORMATION
  Report Type: Spontaneous
  Country: US (occurrence: US)
  Receive Date: 20170315
  Receipt Date: 20181012
  Transmission Date: 20190204
  Serious: Yes (Hospitalization)
  Sender: FDA-Public Use
  Company Number: US-VIFOR (INTERNATIONAL) INC.-VIT-2017-02642

PATIENT
  Age: 66 Year
  Sex: Male
  Weight: 116.22 kg

DRUGS (35)
  1. CALCIUM CARBONATE. [Concomitant]
     Active Substance: CALCIUM CARBONATE
  2. TYLENOL [Concomitant]
     Active Substance: ACETAMINOPHEN
     Route: 048
  3. DECADRON [Concomitant]
     Active Substance: DEXAMETHASONE
     Route: 048
  4. GLYCOLAX [Concomitant]
     Active Substance: POLYETHYLENE GLYCOL 3350
  5. VELTASSA [Suspect]
     Active Substance: PATIROMER
     Route: 048
     Dates: start: 20170303
  6. AMLODIPINE BESYLATE. [Concomitant]
     Active Substance: AMLODIPINE BESYLATE
  7. CYCLOPHOSPHAMIDE. [Concomitant]
     Active Substance: CYCLOPHOSPHAMIDE
  8. FOLIC ACID. [Concomitant]
     Active Substance: FOLIC ACID
  9. FUROSEMIDE. [Concomitant]
     Active Substance: FUROSEMIDE
  10. VITAMIN B [Concomitant]
     Active Substance: VITAMIN B
  11. TUMS [Concomitant]
     Active Substance: CALCIUM CARBONATE
     Route: 048
  12. ZOFRAN [Concomitant]
     Active Substance: ONDANSETRON HYDROCHLORIDE
     Route: 048
  13. VALTREX [Concomitant]
     Active Substance: VALACYCLOVIR HYDROCHLORIDE
  14. RENVELA [Concomitant]
     Active Substance: SEVELAMER CARBONATE
  15. ACETAMINOPHEN. [Concomitant]
     Active Substance: ACETAMINOPHEN
  16. SODIUM POLYSTYRENE SULFONATE. [Concomitant]
     Active Substance: SODIUM POLYSTYRENE SULFONATE
  17. CYTOXAN [Concomitant]
     Active Substance: CYCLOPHOSPHAMIDE
  18. EPOGEN [Concomitant]
     Active Substance: ERYTHROPOIETIN
     Dosage: 2000 UNIT/ML SOLUTION
  19. RENAGEL [Concomitant]
     Active Substance: SEVELAMER HYDROCHLORIDE
     Route: 048
  20. FLEXERIL [Concomitant]
     Active Substance: CYCLOBENZAPRINE HYDROCHLORIDE
     Route: 048
  21. ASPIRIN. [Concomitant]
     Active Substance: ASPIRIN
  22. MIRALAX [Concomitant]
     Active Substance: POLYETHYLENE GLYCOL 3350
  23. NORCO [Concomitant]
     Active Substance: ACETAMINOPHEN\HYDROCODONE BITARTRATE
     Dosage: 5-325 MG
  24. RENA-VITE RX [Concomitant]
     Active Substance: ASCORBIC ACID\BIOTIN\CALCIUM PANTOTHENATE\CYANOCOBALAMIN\FOLIC ACID\NIACINAMIDE\PYRIDOXINE HYDROCHLORIDE\RIBOFLAVIN\THIAMINE MONONITRATE
  25. VELTASSA [Suspect]
     Active Substance: PATIROMER
     Indication: HYPERKALAEMIA
     Route: 048
     Dates: start: 20170218
  26. MILK OF MAGNESIA [Concomitant]
     Active Substance: MAGNESIUM HYDROXIDE
  27. TUBERSOL [Concomitant]
     Active Substance: TUBERCULIN PURIFIED PROTEIN DERIVATIVE
  28. ASPIRIN. [Concomitant]
     Active Substance: ASPIRIN
     Dosage: WITH MEALS
     Route: 048
  29. BISACODYL. [Concomitant]
     Active Substance: BISACODYL
  30. CALCIUM ACETATE. [Concomitant]
     Active Substance: CALCIUM ACETATE
  31. ARANESP [Concomitant]
     Active Substance: DARBEPOETIN ALFA
     Dosage: PER DIALYSIS
  32. COMPAZINE [Concomitant]
     Active Substance: PROCHLORPERAZINE MALEATE
     Route: 048
  33. PHOSLO [Concomitant]
     Active Substance: CALCIUM ACETATE
     Dosage: 2 TABS
  34. ULTRAM [Concomitant]
     Active Substance: TRAMADOL HYDROCHLORIDE
  35. VITAMIN B COMPLEX [Concomitant]
     Active Substance: CYANOCOBALAMIN\DEXPANTHENOL\NIACINAMIDE\PYRIDOXINE HYDROCHLORIDE\RIBOFLAVIN 5^-PHOSPHATE SODIUM\THIAMINE HYDROCHLORIDE\VITAMIN B COMPLEX

REACTIONS (14)
  - Ventricular hypokinesia [Not Recovered/Not Resolved]
  - Malaise [Not Recovered/Not Resolved]
  - Arteriovenous fistula occlusion [Not Recovered/Not Resolved]
  - Nephrogenic anaemia [Not Recovered/Not Resolved]
  - Complication associated with device [Not Recovered/Not Resolved]
  - Cardiac failure congestive [Not Recovered/Not Resolved]
  - Arteriovenous fistula site infection [Not Recovered/Not Resolved]
  - Sepsis [Unknown]
  - Atrial fibrillation [Not Recovered/Not Resolved]
  - Blood potassium increased [Unknown]
  - Gastrointestinal haemorrhage [Unknown]
  - Arteriovenous fistula site complication [Not Recovered/Not Resolved]
  - Left ventricular dysfunction [Not Recovered/Not Resolved]
  - Cardiac failure [Unknown]

NARRATIVE: CASE EVENT DATE: 201703
